FAERS Safety Report 11845003 (Version 2)
Quarter: 2016Q1

REPORT INFORMATION
  Report Type: Report from Study
  Country: US (occurrence: US)
  Receive Date: 20151217
  Receipt Date: 20160201
  Transmission Date: 20160526
  Serious: Yes (Other)
  Sender: FDA-Public Use
  Company Number: US-ABBVIE-15K-163-1517290-00

PATIENT
  Sex: Female

DRUGS (1)
  1. HUMIRA [Suspect]
     Active Substance: ADALIMUMAB
     Indication: CROHN^S DISEASE
     Route: 058
     Dates: start: 20151022, end: 20151210

REACTIONS (4)
  - Muscular weakness [Recovering/Resolving]
  - Intestinal scarring [Unknown]
  - Ileal stenosis [Recovering/Resolving]
  - Hypoaesthesia [Recovering/Resolving]
